FAERS Safety Report 8555150-5 (Version None)
Quarter: 2012Q3

REPORT INFORMATION
  Report Type: 
  Country: None (occurrence: None)
  Receive Date: 20120731
  Receipt Date: 20120723
  Transmission Date: 20120928
  Serious: No
  Sender: FDA-Public Use
  Company Number: US-009507513-1207USA010221

PATIENT

DRUGS (4)
  1. LANTUS [Suspect]
     Route: 058
  2. JANUMET [Suspect]
     Route: 048
  3. GLIPIZIDE [Suspect]
  4. ACTOS [Suspect]

REACTIONS (3)
  - PAIN IN EXTREMITY [None]
  - BLOOD GLUCOSE INCREASED [None]
  - LIMB INJURY [None]
